FAERS Safety Report 9304923 (Version 1)
Quarter: 2013Q1

REPORT INFORMATION
  Report Type: Spontaneous
  Country: FR (occurrence: None)
  Receive Date: 20130219
  Receipt Date: 20130219
  Transmission Date: 20140127
  Serious: Yes (Other)
  Sender: FDA-Public Use
  Company Number: 2012SA089000

PATIENT
  Age: 59 Year
  Sex: Female

DRUGS (3)
  1. PLAQUENIL (HYDROXYCHLOROQUINE SULFATE) / ORAL / TABLET, FILM COATED / 200 MILLIGRAM(S) [Suspect]
     Indication: RHEUMATOID ARTHRITIS
     Route: 048
     Dates: start: 20121106, end: 20121127
  2. LIVIAL [Concomitant]
  3. CORTANCYL [Concomitant]

REACTIONS (10)
  - Toxic skin eruption [None]
  - Drug reaction with eosinophilia and systemic symptoms [None]
  - Nervousness [None]
  - Decreased appetite [None]
  - Odynophagia [None]
  - Pyrexia [None]
  - Abdominal pain [None]
  - Dizziness [None]
  - Genital swelling [None]
  - Tinnitus [None]
